FAERS Safety Report 5139687-7 (Version None)
Quarter: 2006Q4

REPORT INFORMATION
  Report Type: 
  Country: None (occurrence: None)
  Receive Date: 20061024
  Receipt Date: 20061018
  Transmission Date: 20070319
  Serious: Yes (Hospitalization, Other)
  Sender: FDA-Public Use
  Company Number: GXKR2006GB06452

PATIENT
  Age: 51 Year
  Sex: Female

DRUGS (1)
  1. PROPRANOLOL [Suspect]
     Indication: PANIC ATTACK

REACTIONS (14)
  - ADRENALECTOMY [None]
  - DYSPNOEA [None]
  - HYPERHIDROSIS [None]
  - HYPOXIA [None]
  - INFLAMMATION [None]
  - LABILE BLOOD PRESSURE [None]
  - MYOCARDIAL INFARCTION [None]
  - PHAEOCHROMOCYTOMA [None]
  - PULMONARY OEDEMA [None]
  - RENAL FAILURE ACUTE [None]
  - SINUS TACHYCARDIA [None]
  - VENTRICULAR HYPERTROPHY [None]
  - VOMITING [None]
  - WHITE BLOOD CELL COUNT INCREASED [None]
